FAERS Safety Report 6614674-8 (Version None)
Quarter: 2010Q1

REPORT INFORMATION
  Report Type: 
  Country: None (occurrence: None)
  Receive Date: 20100304
  Receipt Date: 20100219
  Transmission Date: 20100710
  Serious: Yes (Death)
  Sender: FDA-Public Use
  Company Number: US-RANBAXY-2010RR-31802

PATIENT
  Age: 47 Year
  Sex: Female

DRUGS (1)
  1. ZOLPIDEM TARTRATE [Suspect]
     Indication: DRUG USE FOR UNKNOWN INDICATION
     Route: 065

REACTIONS (2)
  - CARDIO-RESPIRATORY ARREST [None]
  - INTENTIONAL OVERDOSE [None]
